FAERS Safety Report 25626389 (Version 1)
Quarter: 2025Q3

REPORT INFORMATION
  Report Type: Spontaneous
  Country: US (occurrence: US)
  Receive Date: 20250731
  Receipt Date: 20250731
  Transmission Date: 20251020
  Serious: Yes (Hospitalization, Other)
  Sender: RANBAXY
  Company Number: US-SUN PHARMACEUTICAL INDUSTRIES LTD-2025R1-519803

PATIENT
  Age: 33 Year
  Sex: Female

DRUGS (2)
  1. SILDENAFIL [Suspect]
     Active Substance: SILDENAFIL
     Indication: Supportive care
     Route: 065
  2. EPOPROSTENOL [Suspect]
     Active Substance: EPOPROSTENOL
     Indication: Pulmonary arterial hypertension
     Route: 042

REACTIONS (5)
  - Maternal exposure during pregnancy [Unknown]
  - Premature delivery [Unknown]
  - Headache [Unknown]
  - Hypotension [Unknown]
  - Therapeutic response decreased [Unknown]
